FAERS Safety Report 10057030 (Version 4)
Quarter: 2014Q2

REPORT INFORMATION
  Report Type: Spontaneous
  Country: US (occurrence: US)
  Receive Date: 20140403
  Receipt Date: 20140411
  Transmission Date: 20141212
  Serious: Yes (Life-Threatening, Hospitalization)
  Sender: FDA-Public Use
  Company Number: US-LUNDBECK-DKLU1086392

PATIENT
  Age: 4 Year
  Sex: Male
  Weight: 16 kg

DRUGS (12)
  1. ONFI [Suspect]
     Indication: CONVULSION
     Route: 048
     Dates: start: 201208, end: 20121117
  2. ONFI [Suspect]
  3. DEPAKOTE [Concomitant]
     Indication: CONVULSION
  4. VIMPAT [Concomitant]
     Indication: CONVULSION
  5. FELBATOL [Concomitant]
     Indication: CONVULSION
  6. DIAZEPAM [Concomitant]
     Indication: CONVULSION
  7. ROBINUL [Concomitant]
     Indication: ORAL DISCHARGE
  8. SINGULAR [Concomitant]
     Indication: HYPERSENSITIVITY
  9. PREVACID [Concomitant]
     Indication: PRODUCT USED FOR UNKNOWN INDICATION
  10. GLYCOPYRROLATE [Concomitant]
     Indication: PRODUCT USED FOR UNKNOWN INDICATION
  11. CLINDAMYCIN [Concomitant]
     Indication: PNEUMONIA
  12. MACROBID [Concomitant]
     Indication: URINARY TRACT INFECTION

REACTIONS (7)
  - Hypothermia [Recovered/Resolved]
  - Septic shock [Recovered/Resolved]
  - Tachycardia [Recovered/Resolved]
  - Hypotension [Recovered/Resolved]
  - Encephalopathy [Recovered/Resolved]
  - Lethargy [Unknown]
  - Pneumonia [Unknown]
